FAERS Safety Report 10810174 (Version 1)
Quarter: 2015Q1

REPORT INFORMATION
  Report Type: Spontaneous
  Country: US (occurrence: None)
  Receive Date: 20150212
  Receipt Date: 20150212
  Transmission Date: 20150721
  Serious: No
  Sender: FDA-Public Use
  Company Number: None

PATIENT
  Age: 66 Year
  Sex: Female
  Weight: 113.4 kg

DRUGS (3)
  1. LOVENOX [Suspect]
     Active Substance: ENOXAPARIN SODIUM
     Indication: KNEE ARTHROPLASTY
     Dosage: TWICE DAILY, ONE AM, ONE PM, INJECTION IN BELLY FAT-BELOW BELLY BUTTON
     Dates: start: 20141206, end: 20141214
  2. LOVENOX [Suspect]
     Active Substance: ENOXAPARIN SODIUM
     Dosage: TWICE DAILY, ONE AM, ONE PM, INJECTION IN BELLY FAT-BELOW BELLY BUTTON
     Dates: start: 20141206, end: 20141214
  3. LOVENOX [Suspect]
     Active Substance: ENOXAPARIN SODIUM
     Indication: ANTICOAGULANT THERAPY
     Dosage: TWICE DAILY, ONE AM, ONE PM, INJECTION IN BELLY FAT-BELOW BELLY BUTTON
     Dates: start: 20141206, end: 20141214

REACTIONS (7)
  - Injection site discolouration [None]
  - Injection site pain [None]
  - Injection site erythema [None]
  - Injection site induration [None]
  - Injection site discomfort [None]
  - Injection site vesicles [None]
  - Injection site rash [None]

NARRATIVE: CASE EVENT DATE: 20141213
